FAERS Safety Report 23252141 (Version 1)
Quarter: 2023Q4

REPORT INFORMATION
  Report Type: Spontaneous
  Country: FR (occurrence: FR)
  Receive Date: 20231201
  Receipt Date: 20231201
  Transmission Date: 20240110
  Serious: Yes (Other)
  Sender: FDA-Public Use
  Company Number: FR-PFIZER INC-PV202300185470

PATIENT
  Age: 74 Year
  Sex: Male

DRUGS (2)
  1. TAHOR [Interacting]
     Active Substance: ATORVASTATIN CALCIUM
     Indication: Product used for unknown indication
     Dosage: UNK
     Route: 065
  2. PAXLOVID [Interacting]
     Active Substance: NIRMATRELVIR\RITONAVIR
     Indication: COVID-19 treatment
     Dosage: 3 DOSAGE FORM, TOTAL (PF-07321332 150 MG]/[RITONAVIR 200 MG]; SINGLE DOSE)
     Route: 065

REACTIONS (7)
  - Rhabdomyolysis [Unknown]
  - Drug interaction [Unknown]
  - Bedridden [Unknown]
  - Tetany [Unknown]
  - Myalgia [Unknown]
  - Malaise [Unknown]
  - Incorrect dose administered [Unknown]
